FAERS Safety Report 17063461 (Version 1)
Quarter: 2019Q4

REPORT INFORMATION
  Report Type: Spontaneous
  Country: US (occurrence: US)
  Receive Date: 20191122
  Receipt Date: 20191122
  Transmission Date: 20200122
  Serious: Yes (Other)
  Sender: FDA-Public Use
  Company Number: US-CIRCASSIA PHARMACEUTICALS INC.-2018US013415

PATIENT
  Sex: Male
  Weight: 66.67 kg

DRUGS (12)
  1. PROAIR HFA [Concomitant]
     Active Substance: ALBUTEROL SULFATE
     Indication: PRODUCT USED FOR UNKNOWN INDICATION
     Dosage: UNK
     Route: 065
  2. SPIRIVA [Concomitant]
     Active Substance: TIOTROPIUM BROMIDE MONOHYDRATE
     Indication: DYSPNOEA
     Dosage: UNK
     Route: 065
  3. TUDORZA PRESSAIR [Suspect]
     Active Substance: ACLIDINIUM BROMIDE
     Dosage: 400 UG, DAILY
     Route: 055
     Dates: start: 20171220
  4. CENTRUM SILVER                     /02363801/ [Concomitant]
     Active Substance: MINERALS\VITAMINS
     Indication: OSTEOPOROSIS
     Dosage: UNK
     Route: 065
  5. TUDORZA PRESSAIR [Suspect]
     Active Substance: ACLIDINIUM BROMIDE
     Dosage: 400 UG, DAILY
     Route: 055
     Dates: start: 20171229
  6. TUDORZA PRESSAIR [Suspect]
     Active Substance: ACLIDINIUM BROMIDE
     Dosage: 400 UG, DAILY
     Route: 055
  7. ALBUTEROL                          /00139501/ [Concomitant]
     Active Substance: ALBUTEROL
     Indication: DYSPNOEA
     Dosage: UNK
     Route: 065
  8. TUDORZA PRESSAIR [Suspect]
     Active Substance: ACLIDINIUM BROMIDE
     Indication: CHRONIC OBSTRUCTIVE PULMONARY DISEASE
     Dosage: 400 UG, BID
     Route: 055
     Dates: start: 2013
  9. BRIAZIDE [Concomitant]
     Indication: DYSPNOEA
     Dosage: UNK
     Route: 065
  10. TUDORZA PRESSAIR [Suspect]
     Active Substance: ACLIDINIUM BROMIDE
     Dosage: 400 MG, DAILY
     Route: 055
     Dates: start: 20190929
  11. OXYGEN. [Concomitant]
     Active Substance: OXYGEN
     Indication: PRODUCT USED FOR UNKNOWN INDICATION
     Dosage: 100 %
     Route: 065
  12. CENTRUM SILVER                     /02363801/ [Concomitant]
     Active Substance: MINERALS\VITAMINS
     Indication: BLOOD CHOLESTEROL ABNORMAL

REACTIONS (32)
  - Blood zinc decreased [Unknown]
  - Post procedural haemorrhage [Unknown]
  - Product dose omission [Unknown]
  - Device malfunction [Unknown]
  - Fall [Unknown]
  - Spinal column injury [Unknown]
  - Panic attack [Unknown]
  - Device failure [Unknown]
  - Product use issue [Unknown]
  - Macular degeneration [Unknown]
  - Anxiety [Unknown]
  - Body height decreased [Unknown]
  - Feeling abnormal [Unknown]
  - Dyspnoea [Unknown]
  - Anaemia [Unknown]
  - Femur fracture [Unknown]
  - Pain [Unknown]
  - Gastric ulcer [Unknown]
  - Asthenia [Unknown]
  - Glaucoma [Unknown]
  - Memory impairment [Unknown]
  - Pneumonia [Unknown]
  - Weight decreased [Unknown]
  - Wrist fracture [Unknown]
  - Sinus disorder [Unknown]
  - Tooth loss [Unknown]
  - Product taste abnormal [Unknown]
  - Intentional product misuse [Unknown]
  - Bladder cancer recurrent [Unknown]
  - Hypertension [Unknown]
  - Off label use [Unknown]
  - Tremor [Unknown]

NARRATIVE: CASE EVENT DATE: 2015
